FAERS Safety Report 22162258 (Version 1)
Quarter: 2023Q1

REPORT INFORMATION
  Report Type: Spontaneous
  Country: FR (occurrence: FR)
  Receive Date: 20230331
  Receipt Date: 20230331
  Transmission Date: 20230417
  Serious: Yes (Hospitalization)
  Sender: FDA-Public Use
  Company Number: None

PATIENT
  Age: 43 Year
  Sex: Male

DRUGS (8)
  1. OLANZAPINE [Suspect]
     Active Substance: OLANZAPINE
     Indication: Product used for unknown indication
     Dosage: 5 MILLIGRAM IF NECESSARY
     Route: 048
  2. OXAZEPAM [Suspect]
     Active Substance: OXAZEPAM
     Indication: Product used for unknown indication
     Dosage: 50 MILLIGRAM QD (2/D)
     Route: 048
  3. LITHIUM [Suspect]
     Active Substance: LITHIUM
     Indication: Bipolar disorder
     Dosage: 800 MILLIGRAM
     Route: 048
  4. COMIRNATY [Suspect]
     Active Substance: TOZINAMERAN
     Indication: COVID-19 immunisation
     Dosage: 1 DOSAGE FORM D2, 1 TOTAL
     Route: 030
     Dates: start: 20210917, end: 20210917
  5. COMIRNATY [Suspect]
     Active Substance: TOZINAMERAN
     Dosage: 1 DOSAGE FORM D1, 1 TOTAL
     Route: 030
     Dates: start: 20210827, end: 20210827
  6. ARTISIAL [Suspect]
     Active Substance: CALCIUM CHLORIDE\MAGNESIUM CHLORIDE\POTASSIUM CHLORIDE\POTASSIUM PHOSPHATE, DIBASIC\POTASSIUM PHOSPH
     Indication: Product used for unknown indication
     Dosage: 1 DOSAGE FORM IF NECESSARY
     Route: 048
  7. LORMETAZEPAM [Suspect]
     Active Substance: LORMETAZEPAM
     Indication: Product used for unknown indication
     Dosage: 2 MILLIGRAM QD (1/D)
     Route: 048
  8. SPIKEVAX [Suspect]
     Active Substance: ELASOMERAN
     Indication: COVID-19 immunisation
     Dosage: 1 DOSAGE FORM 1 TOTAL R1
     Route: 030
     Dates: start: 20220115, end: 20220115

REACTIONS (2)
  - Disease recurrence [Recovering/Resolving]
  - Squamous cell carcinoma of the tongue [Recovering/Resolving]

NARRATIVE: CASE EVENT DATE: 20221001
